FAERS Safety Report 23394803 (Version 2)
Quarter: 2024Q1

REPORT INFORMATION
  Report Type: Other
  Country: IN (occurrence: None)
  Receive Date: 20240112
  Receipt Date: 20240206
  Transmission Date: 20240410
  Serious: Yes (Other)
  Sender: FDA-Public Use
  Company Number: IN-ROCHE-3486260

PATIENT

DRUGS (1)
  1. MYCOPHENOLATE MOFETIL [Suspect]
     Active Substance: MYCOPHENOLATE MOFETIL
     Indication: Uveitis
     Route: 065

REACTIONS (82)
  - Diarrhoea [Unknown]
  - Aspartate aminotransferase increased [Unknown]
  - Alanine aminotransferase increased [Unknown]
  - Glaucoma [Unknown]
  - Flank pain [Unknown]
  - Neoplasm malignant [Unknown]
  - Systemic infection [Unknown]
  - Ocular hypertension [Unknown]
  - Vitreous haemorrhage [Unknown]
  - Borderline glaucoma [Unknown]
  - Intraocular pressure test [Unknown]
  - Cataract [Unknown]
  - Visual impairment [Unknown]
  - Eye pain [Unknown]
  - Haemoglobin decreased [Unknown]
  - White blood cell count decreased [Unknown]
  - Fatigue [Unknown]
  - Headache [Unknown]
  - Mood altered [Unknown]
  - Alopecia [Unknown]
  - Nausea [Unknown]
  - Muscular weakness [Unknown]
  - Hypoaesthesia [Unknown]
  - Paraesthesia [Unknown]
  - Dyspnoea [Unknown]
  - Vomiting [Unknown]
  - Hypersensitivity [Unknown]
  - Pyrexia [Unknown]
  - Cardiac failure congestive [Unknown]
  - Arrhythmia [Unknown]
  - Visual impairment [Unknown]
  - Eye irritation [Unknown]
  - Eye pruritus [Unknown]
  - Vitreous floaters [Unknown]
  - Ocular hyperaemia [Unknown]
  - Photopsia [Unknown]
  - Photophobia [Unknown]
  - Glare [Unknown]
  - Irritability [Unknown]
  - Anxiety [Unknown]
  - Depression [Unknown]
  - Frustration tolerance decreased [Unknown]
  - Dizziness [Unknown]
  - Confusional state [Unknown]
  - Apathy [Unknown]
  - Affective disorder [Unknown]
  - Myalgia [Unknown]
  - Arthralgia [Unknown]
  - Neck pain [Unknown]
  - Muscle spasms [Unknown]
  - Swelling [Unknown]
  - Oedema peripheral [Unknown]
  - Swelling face [Unknown]
  - Abdominal pain upper [Unknown]
  - Dyspepsia [Unknown]
  - Gastrooesophageal reflux disease [Unknown]
  - Dizziness [Unknown]
  - Sleep apnoea syndrome [Unknown]
  - Insomnia [Unknown]
  - Nightmare [Unknown]
  - Abdominal distension [Unknown]
  - Tremor [Unknown]
  - Tremor [Unknown]
  - Nasopharyngitis [Unknown]
  - Influenza [Unknown]
  - Constipation [Unknown]
  - Palpitations [Unknown]
  - Chest pain [Unknown]
  - Blood glucose increased [Unknown]
  - Tinnitus [Unknown]
  - Oral herpes [Unknown]
  - Lower respiratory tract congestion [Unknown]
  - Varicella [Unknown]
  - Herpes zoster [Unknown]
  - Genital infection [Unknown]
  - Genital ulceration [Unknown]
  - Genital discharge [Unknown]
  - Oropharyngeal pain [Unknown]
  - Cough [Unknown]
  - Paraesthesia [Unknown]
  - Pollakiuria [Unknown]
  - Disturbance in attention [Unknown]
